FAERS Safety Report 16890511 (Version 2)
Quarter: 2020Q3

REPORT INFORMATION
  Report Type: Report from Study
  Country: CN (occurrence: CN)
  Receive Date: 20191007
  Receipt Date: 20191030
  Transmission Date: 20201104
  Serious: Yes (Hospitalization)
  Sender: FDA-Public Use
  Company Number: CN-JNJFOC-20190702846

PATIENT
  Age: 63 Year
  Sex: Male
  Weight: 64 kg

DRUGS (24)
  1. RIVAROXABAN [Suspect]
     Active Substance: RIVAROXABAN
     Route: 048
     Dates: start: 20171220, end: 20180608
  2. ACETYLSALICYLIC ACID NON?COMPANY [Suspect]
     Active Substance: ASPIRIN
     Indication: PERIPHERAL ARTERIAL OCCLUSIVE DISEASE
     Route: 048
     Dates: start: 20170912, end: 20171220
  3. ROSUVASTATIN. [Concomitant]
     Active Substance: ROSUVASTATIN
     Dosage: 10 MG, QD
     Route: 048
  4. RIVAROXABAN [Suspect]
     Active Substance: RIVAROXABAN
     Indication: THROMBOSIS PROPHYLAXIS
     Route: 048
     Dates: start: 20170615, end: 20170725
  5. ACARBOSE. [Concomitant]
     Active Substance: ACARBOSE
     Route: 048
  6. LEVAMLODIPINE BESILATE [Concomitant]
     Active Substance: LEVAMLODIPINE BESYLATE
     Dosage: 2.5 MG, QD
     Route: 048
  7. ROSUVASTATIN. [Concomitant]
     Active Substance: ROSUVASTATIN
     Route: 048
  8. RIVAROXABAN [Suspect]
     Active Substance: RIVAROXABAN
     Indication: PERIPHERAL REVASCULARISATION
     Route: 048
     Dates: start: 20170912, end: 20171220
  9. RIVAROXABAN [Suspect]
     Active Substance: RIVAROXABAN
     Route: 048
     Dates: start: 20180608, end: 20181212
  10. ACETYLSALICYLIC ACID NON?COMPANY [Suspect]
     Active Substance: ASPIRIN
     Indication: PERIPHERAL REVASCULARISATION
     Route: 048
     Dates: start: 20170725, end: 20170912
  11. ACETYLSALICYLIC ACID NON?COMPANY [Suspect]
     Active Substance: ASPIRIN
     Route: 048
     Dates: start: 20180608, end: 20181212
  12. ACARBOSE. [Concomitant]
     Active Substance: ACARBOSE
     Indication: TYPE 2 DIABETES MELLITUS
     Dosage: 50 MG, TID
  13. ROSUVASTATIN. [Concomitant]
     Active Substance: ROSUVASTATIN
     Indication: ARTERIOSCLEROSIS CORONARY ARTERY
     Dosage: 100 MG, QD
     Route: 048
  14. LEVAMLODIPINE BESYLATE [Concomitant]
     Active Substance: LEVAMLODIPINE BESYLATE
     Indication: HYPERTENSION
     Dosage: 2.5 MG, QD
  15. RIVAROXABAN [Suspect]
     Active Substance: RIVAROXABAN
     Route: 048
     Dates: start: 20181212, end: 20190410
  16. ACETYLSALICYLIC ACID NON?COMPANY [Suspect]
     Active Substance: ASPIRIN
     Route: 048
     Dates: start: 20181212, end: 20190410
  17. INSULIN GLARGINE [Concomitant]
     Active Substance: INSULIN GLARGINE
     Indication: TYPE 2 DIABETES MELLITUS
     Dosage: 12?10 UNIT
     Route: 058
  18. PLAVIX [Concomitant]
     Active Substance: CLOPIDOGREL BISULFATE
     Indication: ARTERIOSCLEROSIS CORONARY ARTERY
     Dosage: 75 MG, QD
  19. WAVE [Concomitant]
     Dosage: 75 MG, QD
     Route: 048
  20. RIVAROXABAN [Suspect]
     Active Substance: RIVAROXABAN
     Indication: PERIPHERAL ARTERIAL OCCLUSIVE DISEASE
     Route: 048
     Dates: start: 20170725, end: 20170912
  21. ASPRIN [Concomitant]
     Active Substance: ASPIRIN
     Indication: DIABETIC RETINOPATHY
     Dosage: 100 MG, QD
     Route: 048
  22. ACETYLSALICYLIC ACID NON?COMPANY [Suspect]
     Active Substance: ASPIRIN
     Indication: THROMBOSIS PROPHYLAXIS
     Route: 048
     Dates: start: 20170615, end: 20170725
  23. HUMALOG [Concomitant]
     Active Substance: INSULIN LISPRO
     Indication: TYPE 2 DIABETES MELLITUS
     Dosage: 12?10IH BID
  24. ACETYLSALICYLIC ACID NON?COMPANY [Suspect]
     Active Substance: ASPIRIN
     Route: 048
     Dates: start: 20171220, end: 20180608

REACTIONS (1)
  - Diabetic foot [Recovered/Resolved]

NARRATIVE: CASE EVENT DATE: 20190515
